FAERS Safety Report 13232356 (Version 2)
Quarter: 2017Q2

REPORT INFORMATION
  Report Type: Spontaneous
  Country: FR (occurrence: FR)
  Receive Date: 20170214
  Receipt Date: 20170412
  Transmission Date: 20170830
  Serious: Yes (Hospitalization)
  Sender: FDA-Public Use
  Company Number: FR-MUNDIPHARMA DS AND PHARMACOVIGILANCE-GBR-2017-0043335

PATIENT
  Age: 65 Year
  Sex: Female

DRUGS (14)
  1. SEROPLEX [Concomitant]
     Active Substance: ESCITALOPRAM OXALATE
     Dosage: 15 MG, 1-0-0 [1 DOSE FORM IN THE MORNING]
  2. RISPERDAL [Concomitant]
     Active Substance: RISPERIDONE
     Dosage: 1 MG, 0-0-1 [1 DOSE FORM IN THE EVENING]
  3. OXYCONTIN [Suspect]
     Active Substance: OXYCODONE HYDROCHLORIDE
     Dosage: 20 (1-0-1) [1 DOSE FORM IN THE MORNING, 1 DOSE FORM IN THE EVENING]
     Route: 048
     Dates: start: 20160812
  4. BECOZYME                           /00302401/ [Concomitant]
     Dosage: UNK, BID
  5. MESTINON [Concomitant]
     Active Substance: PYRIDOSTIGMINE BROMIDE
     Dosage: TABLETS 60 (1-0-0) [ 1 DOSE FORM INTHE MORNING]
  6. TRANSIPEG                          /01618701/ [Concomitant]
     Active Substance: POLYETHYLENE GLYCOL 3350\POTASSIUM CHLORIDE\SODIUM BICARBONATE\SODIUM CHLORIDE\SODIUM SULFATE ANHYDROUS
     Dosage: 5.9 G, 1-0-0 [1 DOSE FORM INTHE MORNING]
  7. OXYNORMORO [Suspect]
     Active Substance: OXYCODONE
     Indication: PAIN
     Route: 048
  8. OXYCONTIN [Suspect]
     Active Substance: OXYCODONE HYDROCHLORIDE
     Indication: FRACTURE PAIN
     Dosage: UNK
     Route: 048
     Dates: start: 20161010
  9. TRANXENE T-TAB [Suspect]
     Active Substance: CLORAZEPATE DIPOTASSIUM
     Indication: ANXIETY
     Dosage: 10 MG, 1-0-0-2 [1 DOSE FORM IN THE MORNING, 2 DOSE FORMS IN THE EVENING]
     Route: 048
     Dates: start: 201208, end: 20161010
  10. OXYCONTIN [Suspect]
     Active Substance: OXYCODONE HYDROCHLORIDE
     Dosage: 30 MG, BID
     Route: 048
     Dates: end: 20161010
  11. LYRICA [Concomitant]
     Active Substance: PREGABALIN
     Dosage: 200 MG, 1-0-1 [1 DOSE FORM INTHE MORNING, 1 DOSE FORM IN THE EVENING]
  12. DOLIPRANE [Concomitant]
     Active Substance: ACETAMINOPHEN
     Dosage: 1000 (1-1-1) [THREE TIMES DAILY]
  13. ALDACTAZINE [Concomitant]
     Active Substance: ALTHIAZIDE\SPIRONOLACTONE
     Dosage: 1-0-0 [1 DOSE FORM IN THE MORNING]
  14. IMOVANE [Suspect]
     Active Substance: ZOPICLONE
     Indication: ANXIETY
     Dosage: 7.5 MG, DAILY [0-0-1 (ONE DOSE FORN IN THE EVENING) OR 2]
     Route: 048
     Dates: start: 201208, end: 20161010

REACTIONS (2)
  - Hypoventilation [Recovered/Resolved]
  - Coma [Recovered/Resolved with Sequelae]

NARRATIVE: CASE EVENT DATE: 20161011
